FAERS Safety Report 21002185 (Version 1)
Quarter: 2022Q2

REPORT INFORMATION
  Report Type: Spontaneous
  Country: FR (occurrence: FR)
  Receive Date: 20220624
  Receipt Date: 20220624
  Transmission Date: 20220721
  Serious: Yes (Hospitalization)
  Sender: FDA-Public Use
  Company Number: None

PATIENT
  Age: 61 Year
  Sex: Female
  Weight: 46 kg

DRUGS (12)
  1. GABAPENTIN [Suspect]
     Active Substance: GABAPENTIN
     Indication: Peripheral sensorimotor neuropathy
     Dosage: 2300 MILLIGRAM DAILY; 700 MG MORNING, 700 MG NOON, 900 MG EVENING. DOSE DECREASED ON 05/18/2022 , FR
     Route: 048
     Dates: start: 2020
  2. OXYCODONE HYDROCHLORIDE [Suspect]
     Active Substance: OXYCODONE HYDROCHLORIDE
     Indication: Neuralgia
     Dosage: STRENGTH : 10 MG , UNIT DOSE : 15 MG
     Route: 048
     Dates: end: 20220509
  3. HYDROMORPHONE HYDROCHLORIDE [Suspect]
     Active Substance: HYDROMORPHONE HYDROCHLORIDE
     Indication: Neuralgia
     Dosage: 56 MILLIGRAM DAILY; 28 MG MORNING AND 28 MG EVENING , FREQUENCY TIME : 1 DAY , STRENGTH : 4 MG
     Route: 048
  4. ROSUVASTATIN [Concomitant]
     Active Substance: ROSUVASTATIN
     Indication: Coronary artery insufficiency
     Dosage: UNIT DOSE : 5 MG , FREQUENCY TIME : 1 DAY
     Route: 048
  5. LEVOTHYROXINE [Concomitant]
     Active Substance: LEVOTHYROXINE
     Indication: Autoimmune thyroiditis
     Dosage: UNIT DOSE : 137 MCG , FREQUENCY TIME : 1 DAY
     Route: 048
  6. RAMIPRIL [Concomitant]
     Active Substance: RAMIPRIL
     Indication: Coronary artery insufficiency
     Dosage: 1.5 TABLETS OF 2.5MG, UNIT DOSE : 3.75 MG , FREQUENCY TIME : 1 DAY
     Route: 048
  7. DILTIAZEM HYDROCHLORIDE [Concomitant]
     Active Substance: DILTIAZEM HYDROCHLORIDE
     Indication: Hypertension
     Dosage: UNIT DOSE : 300 MG , FREQUENCY TIME : 1 DAY , STRENGTH : 300 MG
     Route: 048
  8. KARDEGIC [Concomitant]
     Active Substance: ASPIRIN DL-LYSINE
     Indication: Coronary artery insufficiency
     Dosage: POWDER FOR ORAL SOLUTION IN SACHET-DOSE , STRENGTH : 75 MG , UNIT DOSE : 75 MG , FREQUENCY TIME : 1
     Route: 048
  9. CALCIUM CARBONATE\CHOLECALCIFEROL [Concomitant]
     Active Substance: CALCIUM CARBONATE\CHOLECALCIFEROL
     Indication: Vitamin D deficiency
     Dosage: TABLET TO SUCK OR CHEW , STRENGTH : 500 MG/440 IU , UNIT DOSE : 500 MG , FREQUENCY TIME : 1 DAY
     Route: 048
  10. LANSOPRAZOLE [Concomitant]
     Active Substance: LANSOPRAZOLE
     Indication: Gastrooesophageal reflux disease
     Dosage: UNIT DOSE : 30 MG , FREQUENCY TIME : 1 DAY
     Route: 048
     Dates: start: 2020
  11. AMITRIPTYLINE HYDROCHLORIDE [Concomitant]
     Active Substance: AMITRIPTYLINE HYDROCHLORIDE
     Indication: Neuralgia
     Dosage: UNIT DOSE : 8 GTT , FREQUENCY TIME : 1 DAY , STRENGTH : 40 MG/ML
     Route: 048
  12. PREDNISONE [Concomitant]
     Active Substance: PREDNISONE
     Indication: Product used for unknown indication
     Dosage: 1 MG DECREASE EVERY 7 DAYS , UNIT DOSE : 18 MG , FREQUENCY TIME : 1 DAY
     Route: 048

REACTIONS (1)
  - Liver disorder [Not Recovered/Not Resolved]

NARRATIVE: CASE EVENT DATE: 20200101
